FAERS Safety Report 22239656 (Version 1)
Quarter: 2023Q2

REPORT INFORMATION
  Report Type: Spontaneous
  Country: NL (occurrence: NL)
  Receive Date: 20230421
  Receipt Date: 20230421
  Transmission Date: 20230722
  Serious: Yes (Death, Other)
  Sender: FDA-Public Use
  Company Number: NL-AMGEN-NLDSP2023063905

PATIENT

DRUGS (4)
  1. ADALIMUMAB [Suspect]
     Active Substance: ADALIMUMAB
     Indication: Psoriasis
     Dosage: 40 MILLIGRAM, Q2WK
     Route: 065
  2. METHOTREXATE [Suspect]
     Active Substance: METHOTREXATE
     Indication: Psoriasis
     Dosage: 10 MILLIGRAM, QWK
     Route: 048
  3. METHOTREXATE [Suspect]
     Active Substance: METHOTREXATE
     Dosage: 7.5 MILLIGRAM, QWK
     Route: 048
  4. FOLIC ACID [Concomitant]
     Active Substance: FOLIC ACID
     Indication: Psoriasis
     Dosage: 5 MILLIGRAM, 24 HOURS AFTER MTX ADMINISTRATION

REACTIONS (55)
  - Mediastinitis [Unknown]
  - Cerebrovascular accident [Fatal]
  - Neoplasm malignant [Unknown]
  - Kidney infection [Unknown]
  - Basal cell carcinoma [Unknown]
  - Opportunistic infection [Unknown]
  - Meniscus operation [Unknown]
  - Drug specific antibody present [Unknown]
  - Drug ineffective [Unknown]
  - Cardiac disorder [Unknown]
  - Ear disorder [Unknown]
  - Inner ear disorder [Unknown]
  - Endocrine disorder [Unknown]
  - Eye disorder [Unknown]
  - Gastrointestinal disorder [Unknown]
  - Ill-defined disorder [Unknown]
  - Hepatobiliary disease [Unknown]
  - Immune system disorder [Unknown]
  - Reproductive tract disorder [Unknown]
  - Metabolic disorder [Unknown]
  - Musculoskeletal disorder [Unknown]
  - Connective tissue disorder [Unknown]
  - Nervous system disorder [Unknown]
  - Mental disorder [Unknown]
  - Renal disorder [Unknown]
  - Urinary tract disorder [Unknown]
  - Breast disorder [Unknown]
  - Skin disorder [Unknown]
  - Angiopathy [Unknown]
  - Malnutrition [Unknown]
  - Dental operation [Unknown]
  - Mediastinal disorder [Unknown]
  - Respiratory disorder [Unknown]
  - Labyrinthitis [Unknown]
  - Medical procedure [Unknown]
  - Fatigue [Unknown]
  - Surgery [Unknown]
  - Neoplasm [Unknown]
  - Infection [Unknown]
  - Infected neoplasm [Unknown]
  - Administration site reaction [Unknown]
  - Skin infection [Unknown]
  - Gastrointestinal infection [Unknown]
  - Influenza [Unknown]
  - Urinary tract infection [Unknown]
  - Eye infection [Unknown]
  - Headache [Unknown]
  - Hepatic enzyme increased [Unknown]
  - Ear infection [Unknown]
  - Benign neoplasm [Unknown]
  - Psoriasis [Unknown]
  - Respiratory tract infection [Unknown]
  - Thyroidectomy [Unknown]
  - Lithotripsy [Unknown]
  - Urethrectomy [Unknown]
